FAERS Safety Report 5096149-3 (Version None)
Quarter: 2006Q3

REPORT INFORMATION
  Report Type: 
  Country: None (occurrence: None)
  Receive Date: 20060905
  Receipt Date: 20060323
  Transmission Date: 20061208
  Serious: Yes (Death, Hospitalization)
  Sender: FDA-Public Use
  Company Number: AU-ROCHE-441254

PATIENT
  Age: 71 Year
  Sex: Male
  Weight: 90 kg

DRUGS (3)
  1. CAPECITABINE [Suspect]
     Indication: COLORECTAL CANCER
     Dosage: FROM DAYS ONE TO FOURTEEN OF THE CYCLE.
     Route: 048
     Dates: start: 20060203, end: 20060216
  2. CAPECITABINE [Suspect]
     Route: 048
     Dates: start: 20060316, end: 20060321
  3. AVASTIN [Suspect]
     Indication: COLORECTAL CANCER
     Route: 042
     Dates: start: 20060202

REACTIONS (7)
  - ABDOMINAL PAIN [None]
  - GASTROINTESTINAL PERFORATION [None]
  - GENERAL PHYSICAL HEALTH DETERIORATION [None]
  - INFECTION [None]
  - PERITONITIS [None]
  - REFUSAL OF TREATMENT BY PATIENT [None]
  - RENAL IMPAIRMENT [None]
